FAERS Safety Report 10056854 (Version 1)
Quarter: 2014Q2

REPORT INFORMATION
  Report Type: Spontaneous
  Country: US (occurrence: US)
  Receive Date: 20140403
  Receipt Date: 20140403
  Transmission Date: 20141212
  Serious: No
  Sender: FDA-Public Use
  Company Number: US-BAYER-2014-049771

PATIENT
  Age: 88 Year
  Sex: Female
  Weight: 53.06 kg

DRUGS (3)
  1. ALEVE TABLET [Suspect]
     Indication: BACK PAIN
     Dosage: 1 DF, QD
     Route: 048
     Dates: start: 201403, end: 20140330
  2. METOPROLOL [Concomitant]
     Dosage: UNK
  3. NORVASC [Concomitant]
     Dosage: UNK

REACTIONS (1)
  - Drug ineffective [None]
